FAERS Safety Report 5287490-X (Version None)
Quarter: 2007Q1

REPORT INFORMATION
  Report Type: 
  Country: None (occurrence: None)
  Receive Date: 20070116
  Receipt Date: 20060920
  Transmission Date: 20070707
  Serious: No
  Sender: FDA-Public Use
  Company Number: 2006SP003366

PATIENT
  Age: 54 Year
  Sex: Female
  Weight: 86.1834 kg

DRUGS (6)
  1. LUNESTA [Suspect]
     Indication: INSOMNIA
     Dosage: 3 MG; HS; ORAL
     Route: 048
     Dates: start: 20060101, end: 20060901
  2. PRAMIPEXOLE DIHYDROCHLORIDE [Concomitant]
  3. DIHYDROCHLORIDE [Concomitant]
  4. CHLOROTHIAZIDE [Concomitant]
  5. POTASSIUM ACETATE [Concomitant]
  6. AVAPRO [Concomitant]

REACTIONS (2)
  - DYSGEUSIA [None]
  - STOMATITIS [None]
